FAERS Safety Report 20172674 (Version 5)
Quarter: 2022Q1

REPORT INFORMATION
  Report Type: Spontaneous
  Country: JP (occurrence: JP)
  Receive Date: 20211211
  Receipt Date: 20220303
  Transmission Date: 20220424
  Serious: Yes (Life-Threatening, Hospitalization, Other)
  Sender: FDA-Public Use
  Company Number: JP-KYOWAKIRIN-2021AKK020746

PATIENT
  Age: 48 Year
  Sex: Female

DRUGS (127)
  1. PEGFILGRASTIM [Suspect]
     Active Substance: PEGFILGRASTIM
     Indication: Colony stimulating factor therapy
     Dosage: 3.6 MILLIGRAM, QD
     Route: 058
     Dates: start: 20210625, end: 20210625
  2. DOCETAXEL [Concomitant]
     Active Substance: DOCETAXEL
     Indication: Breast cancer stage II
     Dosage: 75 MG/M2
     Route: 041
     Dates: start: 20210622, end: 20210622
  3. CYCLOPHOSPHAMIDE [Concomitant]
     Active Substance: CYCLOPHOSPHAMIDE
     Indication: Breast cancer stage II
     Dosage: 600 MG/M2
     Route: 041
     Dates: start: 20210622, end: 20210622
  4. MIROGABALIN BESYLATE [Concomitant]
     Active Substance: MIROGABALIN BESYLATE
     Indication: Product used for unknown indication
     Dosage: 15 MG, BID(AFTER BREAKFAST/BEFORE BEDTIME)
     Route: 048
     Dates: start: 20210706, end: 20210728
  5. MIROGABALIN BESYLATE [Concomitant]
     Active Substance: MIROGABALIN BESYLATE
     Dosage: 15 MG, BID(AFTER BREAKFAST/BEFORE BEDTIME)
     Route: 048
     Dates: start: 20210628, end: 20210704
  6. MIROGABALIN BESYLATE [Concomitant]
     Active Substance: MIROGABALIN BESYLATE
     Dosage: 30 MG, BID(AFTER BREAKFAST/BEFORE BEDTIME)
     Route: 048
     Dates: start: 20210705, end: 20210705
  7. MIROGABALIN BESYLATE [Concomitant]
     Active Substance: MIROGABALIN BESYLATE
     Dosage: 30 MG, BID (AFTER BREAKFAST/BEFORE BEDTIME)
     Route: 048
     Dates: start: 20210729, end: 20210802
  8. MIROGABALIN BESYLATE [Concomitant]
     Active Substance: MIROGABALIN BESYLATE
     Dosage: 15 MG, BID (AFTER BREAKFAST/BEFORE BEDTIME)
     Route: 048
     Dates: start: 20210803, end: 20210816
  9. MIROGABALIN BESYLATE [Concomitant]
     Active Substance: MIROGABALIN BESYLATE
     Dosage: 45 MG, BID (AFTER BREAKFAST/BEFORE BEDTIME)
     Route: 048
     Dates: start: 20210817, end: 20210817
  10. MEXILETINE HYDROCHLORIDE [Concomitant]
     Active Substance: MEXILETINE HYDROCHLORIDE
     Indication: Product used for unknown indication
     Dosage: 100 MG, TID(AFTER MEALS)
     Route: 048
     Dates: start: 20210706, end: 20210728
  11. MEXILETINE HYDROCHLORIDE [Concomitant]
     Active Substance: MEXILETINE HYDROCHLORIDE
     Dosage: 100 MG, TID(AFTER MEALS)
     Route: 048
     Dates: start: 20210628, end: 20210704
  12. MEXILETINE HYDROCHLORIDE [Concomitant]
     Active Substance: MEXILETINE HYDROCHLORIDE
     Dosage: 200 MG, TID (AFTER MEALS)
     Route: 048
     Dates: start: 20210705, end: 20210705
  13. MEXILETINE HYDROCHLORIDE [Concomitant]
     Active Substance: MEXILETINE HYDROCHLORIDE
     Dosage: 200 MG, TID(AFTER MEALS
     Route: 048
     Dates: start: 20210729, end: 20210802
  14. MEXILETINE HYDROCHLORIDE [Concomitant]
     Active Substance: MEXILETINE HYDROCHLORIDE
     Dosage: 100 MG, TID (AFTER MEALS)
     Route: 048
     Dates: start: 20210803, end: 20210817
  15. MEXILETINE HYDROCHLORIDE [Concomitant]
     Active Substance: MEXILETINE HYDROCHLORIDE
     Dosage: 300 MG, TID(AFTER MEALS)
     Route: 048
     Dates: start: 20210817, end: 20210817
  16. HERBALS [Concomitant]
     Active Substance: HERBALS
     Indication: Product used for unknown indication
     Dosage: 2.5 G, TID (IMMEDIATELY BEFORE MEAL)
     Route: 048
     Dates: start: 20210706, end: 20210728
  17. HERBALS [Concomitant]
     Active Substance: HERBALS
     Dosage: 2.5 G, TID(IMMEDIATELY BEFORE MEAL)
     Route: 048
     Dates: start: 20210628, end: 20210704
  18. HERBALS [Concomitant]
     Active Substance: HERBALS
     Dosage: 5 G, TID (IMMEDIATELY BEFORE MEAL)
     Route: 048
     Dates: start: 20210705, end: 20210705
  19. HERBALS [Concomitant]
     Active Substance: HERBALS
     Dosage: 5 G, TID (IMMEDIATELY BEFORE MEAL)
     Route: 048
     Dates: start: 20210729, end: 20210802
  20. HERBALS [Concomitant]
     Active Substance: HERBALS
     Dosage: 2.5 G, TID(IMMEDIATELY BEFORE MEAL)
     Route: 048
     Dates: start: 20210803, end: 20210816
  21. HERBALS [Concomitant]
     Active Substance: HERBALS
     Dosage: 7.5 G, TID (IMMEDIATELY BEFORE MEAL)
     Route: 048
     Dates: start: 20210817, end: 20210817
  22. HERBALS [Concomitant]
     Active Substance: HERBALS
     Dosage: 1 DOSAGE FORM, TID
     Route: 048
     Dates: start: 20210721, end: 20210728
  23. HERBALS [Concomitant]
     Active Substance: HERBALS
     Dosage: 2 DOSAGE FORM, TID
     Route: 048
     Dates: start: 20210729, end: 20210802
  24. HERBALS [Concomitant]
     Active Substance: HERBALS
     Dosage: 1 DOSAGE FORM, TID
     Route: 048
     Dates: start: 20210803, end: 20210816
  25. HERBALS [Concomitant]
     Active Substance: HERBALS
     Dosage: 3 DOSAGE FORM, TID
     Route: 048
     Dates: start: 20210817, end: 20210817
  26. HERBALS [Concomitant]
     Active Substance: HERBALS
     Dosage: 1 DOSAGE FORM, TID
     Route: 048
     Dates: start: 20210721, end: 20210728
  27. HERBALS [Concomitant]
     Active Substance: HERBALS
     Dosage: 2 DOSAGE FORM, TID
     Route: 048
     Dates: start: 20210729, end: 20210802
  28. HERBALS [Concomitant]
     Active Substance: HERBALS
     Dosage: 1 DOSAGE FORM, TID
     Route: 048
     Dates: start: 20210803, end: 20210816
  29. HERBALS [Concomitant]
     Active Substance: HERBALS
     Dosage: 3 DOSAGE FORM, TID
     Route: 048
     Dates: start: 20210817, end: 20210817
  30. SOKEIKAKKETSUTO [ACHYRANTHES BIDENTATA ROOT;ANGELICA ACUTILOBA ROOT;AN [Concomitant]
     Indication: Product used for unknown indication
     Dosage: 1 DF, TID(IMMEDIATELY BEFORE MEAL)
     Route: 048
     Dates: start: 20210628, end: 20210705
  31. MAGNESIUM OXIDE [Concomitant]
     Active Substance: MAGNESIUM OXIDE
     Indication: Product used for unknown indication
     Dosage: 330 MG, TID (AFTER MEALS)
     Route: 048
     Dates: start: 20210628, end: 20210712
  32. AZ COMBINATION [Concomitant]
     Indication: Product used for unknown indication
     Dosage: 2 G, 5X/DAY
     Route: 049
     Dates: start: 20210628, end: 20210712
  33. AZ COMBINATION [Concomitant]
     Dosage: 2 GRAM, TID
     Route: 049
     Dates: start: 20210807, end: 20210812
  34. LOXOPROFEN SODIUM DIHYDRATE [Concomitant]
     Active Substance: LOXOPROFEN SODIUM DIHYDRATE
     Indication: Pain
     Dosage: 60 MG WHEN PAIN OCCURRED
     Route: 048
     Dates: start: 20210722, end: 20210729
  35. LOXOPROFEN SODIUM DIHYDRATE [Concomitant]
     Active Substance: LOXOPROFEN SODIUM DIHYDRATE
     Indication: Pyrexia
     Dosage: 60 MG WHEN PAIN OCCURRED
     Route: 048
     Dates: start: 20210702, end: 20210705
  36. LOXOPROFEN SODIUM DIHYDRATE [Concomitant]
     Active Substance: LOXOPROFEN SODIUM DIHYDRATE
     Dosage: 180 MG WHEN PAIN OCCURRED
     Route: 048
     Dates: start: 20210706, end: 20210706
  37. LOXOPROFEN SODIUM DIHYDRATE [Concomitant]
     Active Substance: LOXOPROFEN SODIUM DIHYDRATE
     Dosage: 240 MG WHEN PYREXIA/PAIN OCCURRED
     Route: 048
     Dates: start: 20210707, end: 20210707
  38. LOXOPROFEN SODIUM DIHYDRATE [Concomitant]
     Active Substance: LOXOPROFEN SODIUM DIHYDRATE
     Dosage: 120 MG WHEN PYREXIA/PAIN OCCURRED
     Route: 048
     Dates: start: 20210708, end: 20210711
  39. LOXOPROFEN SODIUM DIHYDRATE [Concomitant]
     Active Substance: LOXOPROFEN SODIUM DIHYDRATE
     Dosage: 60 MG WHEN PYREXIA OCCURRED
     Route: 048
     Dates: start: 20210712, end: 20210714
  40. LOXOPROFEN SODIUM DIHYDRATE [Concomitant]
     Active Substance: LOXOPROFEN SODIUM DIHYDRATE
     Dosage: 120 MG, WHEN PYREXIA/PAIN OCCURRED
     Route: 048
     Dates: start: 20210715, end: 20210720
  41. LOXOPROFEN SODIUM DIHYDRATE [Concomitant]
     Active Substance: LOXOPROFEN SODIUM DIHYDRATE
     Dosage: 180 MG, WHEN PYREXIA/PAIN OCCURRED
     Route: 048
     Dates: start: 20210721, end: 20210721
  42. LOXOPROFEN SODIUM DIHYDRATE [Concomitant]
     Active Substance: LOXOPROFEN SODIUM DIHYDRATE
     Dosage: 60 MG WHEN PAIN OCCURRED
     Route: 048
     Dates: start: 20210730, end: 20210806
  43. LOXOPROFEN SODIUM DIHYDRATE [Concomitant]
     Active Substance: LOXOPROFEN SODIUM DIHYDRATE
     Dosage: 120 MG, WHEN PAIN OCCURRED
     Route: 048
     Dates: start: 20210807, end: 20210808
  44. LOXOPROFEN SODIUM DIHYDRATE [Concomitant]
     Active Substance: LOXOPROFEN SODIUM DIHYDRATE
     Dosage: 180 MG, WHEN PAIN OCCURRED
     Route: 048
     Dates: start: 20210809, end: 20210809
  45. LOXOPROFEN SODIUM DIHYDRATE [Concomitant]
     Active Substance: LOXOPROFEN SODIUM DIHYDRATE
     Dosage: 120 MG, WHEN PAIN OCCURRED
     Route: 048
     Dates: start: 20210810, end: 20210811
  46. LOXOPROFEN SODIUM DIHYDRATE [Concomitant]
     Active Substance: LOXOPROFEN SODIUM DIHYDRATE
     Dosage: 60 MG, WHEN PAIN OCCURRED
     Route: 048
     Dates: start: 20210812, end: 20210816
  47. LOXOPROFEN SODIUM DIHYDRATE [Concomitant]
     Active Substance: LOXOPROFEN SODIUM DIHYDRATE
     Dosage: 180 MG, WHEN PAIN OCCURRED
     Route: 048
     Dates: start: 20210817, end: 20210817
  48. REBAMIPIDE [Concomitant]
     Active Substance: REBAMIPIDE
     Indication: Pain
     Dosage: 200 MG, WHEN PAIN OCCURRED
     Route: 048
     Dates: start: 20210722, end: 20210729
  49. REBAMIPIDE [Concomitant]
     Active Substance: REBAMIPIDE
     Indication: Pyrexia
     Dosage: 100 MG, WHEN PAIN OCCURRED
     Route: 048
     Dates: start: 20210702, end: 20210705
  50. REBAMIPIDE [Concomitant]
     Active Substance: REBAMIPIDE
     Dosage: 300 MG, WHEN PAIN OCCURRED
     Route: 048
     Dates: start: 20210706, end: 20210706
  51. REBAMIPIDE [Concomitant]
     Active Substance: REBAMIPIDE
     Dosage: 400 MG, WHEN PYREXIA/PAIN OCCURRED
     Route: 048
     Dates: start: 20210707, end: 20210707
  52. REBAMIPIDE [Concomitant]
     Active Substance: REBAMIPIDE
     Dosage: 200 MG, WHEN PYREXIA/PAIN OCCURRED
     Route: 048
     Dates: start: 20210708, end: 20210711
  53. REBAMIPIDE [Concomitant]
     Active Substance: REBAMIPIDE
     Dosage: 100 MG WHEN PYREXIA OCCURRED
     Route: 048
     Dates: start: 20210712, end: 20210714
  54. REBAMIPIDE [Concomitant]
     Active Substance: REBAMIPIDE
     Dosage: 200 MG, WHEN PYREXIA/PAIN OCCURRED
     Route: 048
     Dates: start: 20210715, end: 20210720
  55. REBAMIPIDE [Concomitant]
     Active Substance: REBAMIPIDE
     Dosage: 300 MG, WHEN PYREXIA/PAIN OCCURRED
     Route: 048
     Dates: start: 20210721, end: 20210721
  56. REBAMIPIDE [Concomitant]
     Active Substance: REBAMIPIDE
     Dosage: 100 MG, WHEN PAIN OCCURRED
     Route: 048
     Dates: start: 20210730, end: 20210806
  57. REBAMIPIDE [Concomitant]
     Active Substance: REBAMIPIDE
     Dosage: 200 MG, WHEN PAIN OCCURRED
     Route: 048
     Dates: start: 20210807, end: 20210808
  58. REBAMIPIDE [Concomitant]
     Active Substance: REBAMIPIDE
     Dosage: 300 MG, WHEN PAIN OCCURRED
     Route: 048
     Dates: start: 20210809, end: 20210809
  59. REBAMIPIDE [Concomitant]
     Active Substance: REBAMIPIDE
     Dosage: 200 MG, WHEN PAIN OCCURRED
     Route: 048
     Dates: start: 20210810, end: 20210811
  60. REBAMIPIDE [Concomitant]
     Active Substance: REBAMIPIDE
     Dosage: 100 MG, WHEN PAIN OCCURRED
     Route: 048
     Dates: start: 20210812, end: 20210816
  61. REBAMIPIDE [Concomitant]
     Active Substance: REBAMIPIDE
     Dosage: 300 MG, WHEN PAIN OCCURRED
     Route: 048
     Dates: start: 20210817, end: 20210817
  62. BILASTINE [Concomitant]
     Active Substance: BILASTINE
     Indication: Product used for unknown indication
     Dosage: 20 MG, QD (BEFORE BEDTIME)
     Route: 048
     Dates: start: 20210702, end: 20210708
  63. RESTAMIN KOWA [Concomitant]
     Indication: Pruritus
     Dosage: 50 G, WHEN ITCHY
     Route: 061
     Dates: start: 20210702, end: 20210702
  64. CEFCAPENE PIVOXIL HYDROCHLORIDE HYDRATE [Concomitant]
     Active Substance: CEFCAPENE PIVOXIL HYDROCHLORIDE HYDRATE
     Indication: Product used for unknown indication
     Dosage: 100 MG, TID(AFTER MEALS)
     Route: 048
     Dates: start: 20210702, end: 20210706
  65. URSODIOL [Concomitant]
     Active Substance: URSODIOL
     Indication: Product used for unknown indication
     Dosage: 100 MG, TID (AFTER MEALS)
     Route: 048
     Dates: start: 20210709, end: 20210715
  66. AMMONIUM GLYCYRRHIZATE\GLYCINE\RACEMETHIONINE [Concomitant]
     Active Substance: AMMONIUM GLYCYRRHIZATE\GLYCINE\RACEMETHIONINE
     Indication: Product used for unknown indication
     Dosage: 1 DF, TID (AFTER MEALS)
     Route: 048
     Dates: start: 20210709, end: 20210715
  67. CALONAL [Concomitant]
     Active Substance: ACETAMINOPHEN
     Indication: Pyrexia
     Dosage: 400 MG WHEN PYREXIA OCCURRED
     Route: 048
     Dates: start: 20210727, end: 20210728
  68. CALONAL [Concomitant]
     Active Substance: ACETAMINOPHEN
     Indication: Pain
     Dosage: 400 MG WHEN PYREXIA OCCURRED
     Route: 048
     Dates: start: 20210712, end: 20210720
  69. CALONAL [Concomitant]
     Active Substance: ACETAMINOPHEN
     Dosage: 800 MG, WHEN PYREXIA OCCURRED
     Route: 048
     Dates: start: 20210721, end: 20210726
  70. CALONAL [Concomitant]
     Active Substance: ACETAMINOPHEN
     Dosage: 400 MG WHEN PYREXIA OCCURRED
     Route: 048
     Dates: start: 20210729, end: 20210729
  71. CALONAL [Concomitant]
     Active Substance: ACETAMINOPHEN
     Dosage: 800 MG WHEN PAIN/PYREXIA OCCURRED
     Route: 048
     Dates: start: 20210730, end: 20210804
  72. CALONAL [Concomitant]
     Active Substance: ACETAMINOPHEN
     Dosage: 400 MG WHEN PAIN OCCURRED
     Route: 048
     Dates: start: 20210805, end: 20210807
  73. CALONAL [Concomitant]
     Active Substance: ACETAMINOPHEN
     Dosage: 800 MG WHEN PAIN OCCURRED
     Route: 048
     Dates: start: 20210808, end: 20210813
  74. CALONAL [Concomitant]
     Active Substance: ACETAMINOPHEN
     Dosage: 1200 MG WHEN PAIN OCCURRED
     Route: 048
     Dates: start: 20210814, end: 20210816
  75. CALONAL [Concomitant]
     Active Substance: ACETAMINOPHEN
     Dosage: 2000 MG WHEN PAIN OCCURRED
     Route: 048
     Dates: start: 20210817, end: 20210817
  76. WHITE PETROLATUM [Concomitant]
     Active Substance: PETROLATUM
     Indication: Product used for unknown indication
     Dosage: 10 G SEVERAL TIMES A DAY
     Route: 061
     Dates: start: 20210712, end: 20210712
  77. GLYCOSAMINOGLYCANS [Concomitant]
     Active Substance: GLYCOSAMINOGLYCANS
     Indication: Product used for unknown indication
     Dosage: 25 G SEVERAL TIMES A DAY
     Route: 061
     Dates: start: 20210712, end: 20210712
  78. LANSOPRAZOLE [Concomitant]
     Active Substance: LANSOPRAZOLE
     Indication: Product used for unknown indication
     Dosage: 30 MG, QD (AFTER BREAKFAST)
     Route: 048
     Dates: start: 20210714, end: 20210719
  79. NEXIUM [ESOMEPRAZOLE MAGNESIUM TRIHYDRATE] [Concomitant]
     Indication: Product used for unknown indication
     Dosage: 20 MG, QD (AFTER BREAKFAST)
     Route: 048
     Dates: start: 20210715, end: 20210728
  80. NEXIUM [ESOMEPRAZOLE MAGNESIUM TRIHYDRATE] [Concomitant]
     Dosage: 40 MG, QD (AFTER BREAKFAST)
     Route: 048
     Dates: start: 20210729, end: 20210802
  81. NEXIUM [ESOMEPRAZOLE MAGNESIUM TRIHYDRATE] [Concomitant]
     Dosage: 20 MG, QD (AFTER BREAKFAST)
     Route: 048
     Dates: start: 20210803, end: 20210816
  82. NEXIUM [ESOMEPRAZOLE MAGNESIUM TRIHYDRATE] [Concomitant]
     Dosage: 60 MG, QD (AFTER BREAKFAST)
     Route: 048
     Dates: start: 20210817, end: 20210817
  83. BISOPROLOL [Concomitant]
     Active Substance: BISOPROLOL
     Indication: Product used for unknown indication
     Dosage: 4 MG, QD
     Dates: start: 20210725, end: 20210727
  84. BISOPROLOL [Concomitant]
     Active Substance: BISOPROLOL
     Dosage: 4 MG, QD (EVENING)
     Dates: start: 20210802, end: 20210816
  85. BISOPROLOL [Concomitant]
     Active Substance: BISOPROLOL
     Dosage: 16 MG, QD (EVENING)
     Dates: start: 20210817, end: 20210817
  86. CALCIUM CHLORIDE ANHYDROUS\POTASSIUM CHLORIDE\SODIUM CHLORIDE\SODIUM L [Concomitant]
     Active Substance: CALCIUM CHLORIDE ANHYDROUS\POTASSIUM CHLORIDE\SODIUM CHLORIDE\SODIUM LACTATE
     Indication: Product used for unknown indication
     Dosage: 500 ML
     Route: 041
     Dates: start: 20210705, end: 20210705
  87. CALCIUM CHLORIDE ANHYDROUS\POTASSIUM CHLORIDE\SODIUM CHLORIDE\SODIUM L [Concomitant]
     Active Substance: CALCIUM CHLORIDE ANHYDROUS\POTASSIUM CHLORIDE\SODIUM CHLORIDE\SODIUM LACTATE
     Dosage: 500 ML
     Route: 041
     Dates: start: 20210702, end: 20210702
  88. CALCIUM CHLORIDE ANHYDROUS\POTASSIUM CHLORIDE\SODIUM CHLORIDE\SODIUM L [Concomitant]
     Active Substance: CALCIUM CHLORIDE ANHYDROUS\POTASSIUM CHLORIDE\SODIUM CHLORIDE\SODIUM LACTATE
     Dosage: 1000 ML
     Route: 041
     Dates: start: 20210730, end: 20210730
  89. SOLDEM 3A [Concomitant]
     Active Substance: CARBOHYDRATES\POTASSIUM CHLORIDE\SODIUM CHLORIDE\SODIUM LACTATE
     Indication: Product used for unknown indication
     Dosage: 500 ML
     Route: 041
     Dates: start: 20210708, end: 20210713
  90. SOLDEM 3A [Concomitant]
     Active Substance: CARBOHYDRATES\POTASSIUM CHLORIDE\SODIUM CHLORIDE\SODIUM LACTATE
     Dosage: 1000 ML
     Route: 041
     Dates: start: 20210706, end: 20210706
  91. SOLDEM 3A [Concomitant]
     Active Substance: CARBOHYDRATES\POTASSIUM CHLORIDE\SODIUM CHLORIDE\SODIUM LACTATE
     Dosage: 1500 ML
     Route: 041
     Dates: start: 20210707, end: 20210707
  92. METOCLOPRAMIDE HYDROCHLORIDE [Concomitant]
     Active Substance: METOCLOPRAMIDE HYDROCHLORIDE
     Indication: Product used for unknown indication
     Dosage: 10 MILLIGRAM
     Route: 041
     Dates: start: 20210712, end: 20210712
  93. METOCLOPRAMIDE HYDROCHLORIDE [Concomitant]
     Active Substance: METOCLOPRAMIDE HYDROCHLORIDE
     Dosage: 10 MILLIGRAM
     Route: 041
     Dates: start: 20210707, end: 20210707
  94. METOCLOPRAMIDE HYDROCHLORIDE [Concomitant]
     Active Substance: METOCLOPRAMIDE HYDROCHLORIDE
     Dosage: 10 MILLIGRAM
     Route: 041
     Dates: start: 20210811, end: 20210811
  95. HEPARIN SODIUM [Concomitant]
     Active Substance: HEPARIN SODIUM
     Indication: Product used for unknown indication
     Dosage: 500 U 5 ML/1 V
     Route: 041
     Dates: start: 20210714, end: 20210714
  96. HEPARIN SODIUM [Concomitant]
     Active Substance: HEPARIN SODIUM
     Dosage: 500 U 5 ML/1 V
     Route: 041
     Dates: start: 20210707, end: 20210712
  97. HEPARIN SODIUM [Concomitant]
     Active Substance: HEPARIN SODIUM
     Dosage: 500 U 5 ML/2 V
     Route: 041
     Dates: start: 20210713, end: 20210713
  98. HEPARIN SODIUM [Concomitant]
     Active Substance: HEPARIN SODIUM
     Dosage: 500 U 5 ML/1 V
     Route: 041
     Dates: start: 20210804, end: 20210808
  99. HEPARIN SODIUM [Concomitant]
     Active Substance: HEPARIN SODIUM
     Dosage: 500 U 5 ML/1 V
     Route: 041
     Dates: start: 20210810, end: 20210811
  100. HEPARIN SODIUM [Concomitant]
     Active Substance: HEPARIN SODIUM
     Dosage: 500 U 5 ML/1 V
     Route: 041
     Dates: start: 20210813, end: 20210813
  101. GASTER [Concomitant]
     Active Substance: FAMOTIDINE
     Indication: Product used for unknown indication
     Dosage: 20 MILLIGRAM
     Route: 041
     Dates: start: 20210712, end: 20210713
  102. PREDNISOLONE SODIUM SUCCINATE [Concomitant]
     Active Substance: PREDNISOLONE SODIUM SUCCINATE
     Indication: Product used for unknown indication
     Dosage: 40 MILLIGRAM
     Route: 041
     Dates: start: 20210712, end: 20210714
  103. PREDNISOLONE SODIUM SUCCINATE [Concomitant]
     Active Substance: PREDNISOLONE SODIUM SUCCINATE
     Dosage: 45 MILLIGRAM
     Route: 048
     Dates: start: 20210727, end: 20210728
  104. PREDNISOLONE SODIUM SUCCINATE [Concomitant]
     Active Substance: PREDNISOLONE SODIUM SUCCINATE
     Dosage: 40 MILLIGRAM, QD
     Route: 048
     Dates: start: 20210712, end: 20210714
  105. METOPROLOL TARTRATE [Concomitant]
     Active Substance: METOPROLOL TARTRATE
     Indication: Product used for unknown indication
     Dosage: 40 MG, QD (NOON)
     Route: 048
     Dates: start: 20210729, end: 20210729
  106. NITROGLYCERIN [Concomitant]
     Active Substance: NITROGLYCERIN
     Indication: Product used for unknown indication
     Dosage: 0.3 MILLIGRAM
     Route: 060
     Dates: start: 20210729, end: 20210729
  107. ZOLPIDEM TARTRATE [Concomitant]
     Active Substance: ZOLPIDEM TARTRATE
     Indication: Product used for unknown indication
     Dosage: 5 MG, QD(BEFORE BEDTIME)
     Route: 048
     Dates: start: 20210808, end: 20210808
  108. ZOLPIDEM TARTRATE [Concomitant]
     Active Substance: ZOLPIDEM TARTRATE
     Dosage: 10 MG, QD (BEFORE BEDTIME)
     Route: 048
     Dates: start: 20210810, end: 20210810
  109. ZOLPIDEM TARTRATE [Concomitant]
     Active Substance: ZOLPIDEM TARTRATE
     Dosage: 5 MG, QD (BEFORE BEDTIME)
     Route: 048
     Dates: start: 20210811, end: 20210816
  110. ZOLPIDEM TARTRATE [Concomitant]
     Active Substance: ZOLPIDEM TARTRATE
     Dosage: 15 MG, QD (BEFORE BEDTIME)
     Route: 048
     Dates: start: 20210817, end: 20210817
  111. PIPERACILLIN SODIUM\TAZOBACTAM SODIUM [Concomitant]
     Active Substance: PIPERACILLIN SODIUM\TAZOBACTAM SODIUM
     Indication: C-reactive protein increased
     Dosage: 4.5 GRAM, TID
     Route: 041
     Dates: start: 20210706, end: 20210712
  112. YOKUININTO [ANGELICA ACUTILOBA ROOT;ATRACTYLODES LANCEA RHIZOME;CINNAM [Concomitant]
     Indication: Product used for unknown indication
     Dosage: 1 DF, TID(IMMEDIATELY BEFORE MEAL)
     Dates: start: 20210721, end: 20210728
  113. YOKUININTO [ANGELICA ACUTILOBA ROOT;ATRACTYLODES LANCEA RHIZOME;CINNAM [Concomitant]
     Dosage: 1 DF, TID(IMMEDIATELY BEFORE MEAL)
     Dates: start: 20210729, end: 20210802
  114. YOKUININTO [ANGELICA ACUTILOBA ROOT;ATRACTYLODES LANCEA RHIZOME;CINNAM [Concomitant]
     Dosage: 1 DF, TID(IMMEDIATELY BEFORE MEAL)
     Dates: start: 20210803, end: 20210816
  115. YOKUININTO [ANGELICA ACUTILOBA ROOT;ATRACTYLODES LANCEA RHIZOME;CINNAM [Concomitant]
     Dosage: 3 DF, TID(IMMEDIATELY BEFORE MEAL)
     Dates: start: 20210817, end: 20210817
  116. SODIUM CHLORIDE [Concomitant]
     Active Substance: SODIUM CHLORIDE
     Indication: Product used for unknown indication
     Dosage: 100 MILLILITER
     Dates: start: 20210713, end: 20210714
  117. SODIUM CHLORIDE [Concomitant]
     Active Substance: SODIUM CHLORIDE
     Dosage: 100 MILLILITER
     Dates: start: 20210705, end: 20210705
  118. SODIUM CHLORIDE [Concomitant]
     Active Substance: SODIUM CHLORIDE
     Dosage: 100 MILLILITER
     Dates: start: 20210706, end: 20210711
  119. SODIUM CHLORIDE [Concomitant]
     Active Substance: SODIUM CHLORIDE
     Dosage: 100 MILLILITER
     Dates: start: 20210712, end: 20210712
  120. CALCIUM CHLORIDE\POTASSIUM CHLORIDE\SODIUM ACETATE\SODIUM CHLORIDE [Concomitant]
     Active Substance: CALCIUM CHLORIDE\POTASSIUM CHLORIDE\SODIUM ACETATE\SODIUM CHLORIDE
     Indication: Product used for unknown indication
     Dosage: 500 MILLILITER
     Route: 041
     Dates: start: 20210706, end: 20210706
  121. CALCIUM CHLORIDE\POTASSIUM CHLORIDE\SODIUM ACETATE\SODIUM CHLORIDE [Concomitant]
     Active Substance: CALCIUM CHLORIDE\POTASSIUM CHLORIDE\SODIUM ACETATE\SODIUM CHLORIDE
     Dosage: 1000 MILLILITER
     Route: 041
     Dates: start: 20210804, end: 20210804
  122. CALCIUM CHLORIDE\POTASSIUM CHLORIDE\SODIUM ACETATE\SODIUM CHLORIDE [Concomitant]
     Active Substance: CALCIUM CHLORIDE\POTASSIUM CHLORIDE\SODIUM ACETATE\SODIUM CHLORIDE
     Dosage: 1000 MILLILITER
     Route: 041
     Dates: start: 20210805, end: 20210811
  123. CALCIUM CHLORIDE\POTASSIUM CHLORIDE\SODIUM ACETATE\SODIUM CHLORIDE [Concomitant]
     Active Substance: CALCIUM CHLORIDE\POTASSIUM CHLORIDE\SODIUM ACETATE\SODIUM CHLORIDE
     Dosage: 1000 MILLILITER
     Route: 041
     Dates: start: 20210812, end: 20210812
  124. CALCIUM CHLORIDE\POTASSIUM CHLORIDE\SODIUM ACETATE\SODIUM CHLORIDE [Concomitant]
     Active Substance: CALCIUM CHLORIDE\POTASSIUM CHLORIDE\SODIUM ACETATE\SODIUM CHLORIDE
     Dosage: 1000 MILLILITER
     Route: 041
     Dates: start: 20210813, end: 20210813
  125. ISOTONIC SODIUM CHLORIDE SOLUTION [Concomitant]
     Active Substance: SODIUM CHLORIDE
     Indication: Product used for unknown indication
     Dosage: 100 MILLILITER
     Route: 041
     Dates: start: 20210712, end: 20210712
  126. ISOTONIC SODIUM CHLORIDE SOLUTION [Concomitant]
     Active Substance: SODIUM CHLORIDE
     Dosage: 100 MILLILITER
     Route: 041
     Dates: start: 20210707, end: 20210707
  127. ISOTONIC SODIUM CHLORIDE SOLUTION [Concomitant]
     Active Substance: SODIUM CHLORIDE
     Dosage: 50 MILLILITER
     Route: 041
     Dates: start: 20210811, end: 20210811

REACTIONS (4)
  - Subarachnoid haemorrhage [Recovered/Resolved]
  - Arteritis [Recovered/Resolved]
  - Arteritis [Recovered/Resolved]
  - Aortitis [Recovered/Resolved]

NARRATIVE: CASE EVENT DATE: 20210712
